FAERS Safety Report 15413119 (Version 1)
Quarter: 2018Q3

REPORT INFORMATION
  Report Type: Spontaneous
  Country: US (occurrence: US)
  Receive Date: 20180917
  Receipt Date: 20180917
  Transmission Date: 20181010
  Serious: No
  Sender: FDA-Public Use
  Company Number: None

PATIENT
  Age: 61 Year
  Sex: Male

DRUGS (1)
  1. ZYKADIA [Suspect]
     Active Substance: CERITINIB
     Dates: start: 201608, end: 20180914

REACTIONS (2)
  - Diarrhoea [None]
  - Malignant neoplasm progression [None]

NARRATIVE: CASE EVENT DATE: 20180914
